FAERS Safety Report 17121628 (Version 1)
Quarter: 2019Q4

REPORT INFORMATION
  Report Type: Spontaneous
  Country: US (occurrence: US)
  Receive Date: 20191113
  Receipt Date: 20191113
  Transmission Date: 20200122
  Serious: Yes (Other)
  Sender: FDA-Public Use
  Company Number: None

PATIENT
  Age: 50 Year
  Sex: Female
  Weight: 68.95 kg

DRUGS (14)
  1. NIACIN. [Concomitant]
     Active Substance: NIACIN
  2. LISINOPRIL. [Concomitant]
     Active Substance: LISINOPRIL
  3. OMEPRAZOLE. [Concomitant]
     Active Substance: OMEPRAZOLE
  4. VITAMIN B12 [Concomitant]
     Active Substance: CYANOCOBALAMIN
  5. METAPROLOL [Concomitant]
     Active Substance: METOPROLOL
  6. DULOXETINE HYDROCHLORIDE. [Concomitant]
     Active Substance: DULOXETINE HYDROCHLORIDE
  7. MEDROXPR A.C. [Concomitant]
  8. ASPIRIN. [Concomitant]
     Active Substance: ASPIRIN
  9. TOPIRAMATE. [Concomitant]
     Active Substance: TOPIRAMATE
  10. METFORMIN [Concomitant]
     Active Substance: METFORMIN HYDROCHLORIDE
  11. PRAVASTATIN. [Concomitant]
     Active Substance: PRAVASTATIN
  12. POTASSIUM [Concomitant]
     Active Substance: POTASSIUM
  13. LAMOTRIGINE. [Suspect]
     Active Substance: LAMOTRIGINE
     Indication: MOOD ALTERED
     Dosage: ?          QUANTITY:1 OR 2 TABS;?
     Route: 048
     Dates: start: 20190925, end: 20191022
  14. HCTZ [Concomitant]
     Active Substance: HYDROCHLOROTHIAZIDE

REACTIONS (12)
  - Musculoskeletal stiffness [None]
  - Weight decreased [None]
  - Back pain [None]
  - Nausea [None]
  - Dry skin [None]
  - Alopecia [None]
  - Rash macular [None]
  - Insomnia [None]
  - Logorrhoea [None]
  - Diarrhoea [None]
  - Burning sensation [None]
  - Confusional state [None]

NARRATIVE: CASE EVENT DATE: 20191022
